FAERS Safety Report 13050103 (Version 1)
Quarter: 2016Q4

REPORT INFORMATION
  Report Type: Spontaneous
  Country: GR (occurrence: GR)
  Receive Date: 20161221
  Receipt Date: 20161221
  Transmission Date: 20170207
  Serious: Yes (Other)
  Sender: FDA-Public Use
  Company Number: GR-009507513-1612GRC010422

PATIENT
  Age: 50 Year
  Sex: Female
  Weight: 45 kg

DRUGS (1)
  1. EZETROL [Suspect]
     Active Substance: EZETIMIBE
     Indication: TYPE IIA HYPERLIPIDAEMIA
     Dosage: 10 MG, QD
     Route: 048
     Dates: start: 20160910, end: 20160930

REACTIONS (2)
  - Myalgia [Recovered/Resolved]
  - Muscular weakness [Recovered/Resolved]
